FAERS Safety Report 20785859 (Version 1)
Quarter: 2022Q2

REPORT INFORMATION
  Report Type: Spontaneous
  Country: US (occurrence: None)
  Receive Date: 20220504
  Receipt Date: 20220504
  Transmission Date: 20220721
  Serious: No
  Sender: FDA-Public Use
  Company Number: US-ROCHE-2806550

PATIENT
  Age: 40 Year
  Sex: Female

DRUGS (11)
  1. OCREVUS [Suspect]
     Active Substance: OCRELIZUMAB
     Indication: Multiple sclerosis
     Dosage: 300 MG/10 ML
     Route: 042
     Dates: start: 20210330
  2. BENADRYL [Concomitant]
     Active Substance: DIPHENHYDRAMINE HYDROCHLORIDE
  3. TYLENOL [Concomitant]
     Active Substance: ACETAMINOPHEN
  4. SOLU-MEDROL [Concomitant]
     Active Substance: METHYLPREDNISOLONE SODIUM SUCCINATE
  5. ADDERALL [Concomitant]
     Active Substance: AMPHETAMINE ASPARTATE\AMPHETAMINE SULFATE\DEXTROAMPHETAMINE SACCHARATE\DEXTROAMPHETAMINE SULFATE
     Route: 048
  6. ATORVASTATIN [Concomitant]
     Active Substance: ATORVASTATIN
     Route: 048
  7. COPAXONE [Concomitant]
     Active Substance: GLATIRAMER ACETATE
     Dosage: 40 MG/ML
     Route: 058
  8. EPINEPHRINE [Concomitant]
     Active Substance: EPINEPHRINE
  9. RAMIPRIL [Concomitant]
     Active Substance: RAMIPRIL
     Route: 048
  10. RIZATRIPTAN [Concomitant]
     Active Substance: RIZATRIPTAN
     Route: 048
  11. ZYRTEC [Concomitant]
     Active Substance: CETIRIZINE HYDROCHLORIDE

REACTIONS (12)
  - Pruritus [Unknown]
  - Rash [Recovering/Resolving]
  - Throat irritation [Not Recovered/Not Resolved]
  - Oral pruritus [Not Recovered/Not Resolved]
  - Eye pruritus [Not Recovered/Not Resolved]
  - Ear pruritus [Not Recovered/Not Resolved]
  - Urticaria [Unknown]
  - Cough [Unknown]
  - Fatigue [Unknown]
  - Band sensation [Unknown]
  - Limb injury [Unknown]
  - Fall [Unknown]

NARRATIVE: CASE EVENT DATE: 20210330
